FAERS Safety Report 15834460 (Version 1)
Quarter: 2019Q1

REPORT INFORMATION
  Report Type: Spontaneous
  Country: FR (occurrence: FR)
  Receive Date: 20190116
  Receipt Date: 20190116
  Transmission Date: 20190417
  Serious: No
  Sender: FDA-Public Use
  Company Number: FR-ELI_LILLY_AND_COMPANY-FR201901005139

PATIENT
  Age: 59 Year
  Sex: Male

DRUGS (4)
  1. PERMIXON [Concomitant]
     Active Substance: HERBALS\SAW PALMETTO
     Indication: PRODUCT USED FOR UNKNOWN INDICATION
     Dosage: UNK, UNKNOWN
     Route: 065
  2. CORTISONE [HYDROCORTISONE] [Concomitant]
     Indication: RHINITIS ALLERGIC
     Dosage: UNK, UNKNOWN
     Route: 065
  3. TADALAFIL 5MG [Suspect]
     Active Substance: TADALAFIL
     Indication: ERECTILE DYSFUNCTION
     Dosage: 5 MG, EACH MORNING
     Route: 065
  4. ANDROGEL [Concomitant]
     Active Substance: TESTOSTERONE
     Indication: PRODUCT USED FOR UNKNOWN INDICATION
     Dosage: UNK, UNKNOWN
     Route: 065

REACTIONS (4)
  - Skin irritation [Unknown]
  - Pruritus [Unknown]
  - Gastrooesophageal reflux disease [Unknown]
  - Eye haemorrhage [Unknown]

NARRATIVE: CASE EVENT DATE: 201812
